FAERS Safety Report 4455989-1 (Version None)
Quarter: 2004Q3

REPORT INFORMATION
  Report Type: 
  Country: None (occurrence: None)
  Receive Date: 20040920
  Receipt Date: 20040909
  Transmission Date: 20050211
  Serious: Yes (Hospitalization)
  Sender: FDA-Public Use
  Company Number: GBWYE401012NOV03

PATIENT
  Age: 46 Year
  Sex: Male

DRUGS (6)
  1. NEORAL [Suspect]
     Indication: PROPHYLAXIS AGAINST TRANSPLANT REJECTION
     Dosage: 100 MG 2X PER 1 DAY
     Route: 048
     Dates: start: 20030531
  2. MYCOPHENOLATE MOFETIL (MYCOPHENOLATE MOFETIL, , 0) [Suspect]
     Dosage: 1 G 2X PER 1 DAY
     Route: 048
     Dates: start: 20030531
  3. PREDNISOLONE [Suspect]
     Dosage: 10 MG AND 5 MG ON ALTERNATE DAYS
     Route: 048
     Dates: start: 20030531
  4. DOXAZOSIN [Concomitant]
  5. SEPTRA [Concomitant]
  6. SODIUM BICARBONATE [Concomitant]

REACTIONS (6)
  - BLOOD AMYLASE INCREASED [None]
  - BLOOD CREATININE INCREASED [None]
  - CYTOMEGALOVIRUS INFECTION [None]
  - GALLBLADDER DISORDER [None]
  - URINARY TRACT INFECTION [None]
  - URINE ABNORMALITY [None]
